FAERS Safety Report 20427121 (Version 1)
Quarter: 2022Q1

REPORT INFORMATION
  Report Type: Report from Study
  Country: US (occurrence: US)
  Receive Date: 20220204
  Receipt Date: 20220204
  Transmission Date: 20220423
  Serious: No
  Sender: FDA-Public Use
  Company Number: US-EXELIXIS-CABO-21043299

PATIENT
  Age: 55 Year
  Sex: Male

DRUGS (1)
  1. CABOMETYX [Suspect]
     Active Substance: CABOZANTINIB S-MALATE
     Indication: Hepatocellular carcinoma
     Dosage: 60 MG, QD
     Dates: start: 20210805

REACTIONS (21)
  - Pyrexia [Not Recovered/Not Resolved]
  - Jaundice [Unknown]
  - Night sweats [Unknown]
  - Abdominal distension [Not Recovered/Not Resolved]
  - Pain of skin [Unknown]
  - Nail discolouration [Unknown]
  - Sensitive skin [Unknown]
  - Skin fissures [Unknown]
  - Appetite disorder [Unknown]
  - Back pain [Unknown]
  - Blood pressure fluctuation [Unknown]
  - Skin haemorrhage [Unknown]
  - Vomiting [Unknown]
  - Asthenia [Unknown]
  - Taste disorder [Unknown]
  - Nausea [Unknown]
  - Diarrhoea [Unknown]
  - Constipation [Unknown]
  - Stomatitis [Unknown]
  - Fatigue [Not Recovered/Not Resolved]
  - Off label use [Unknown]

NARRATIVE: CASE EVENT DATE: 20210801
